FAERS Safety Report 12389025 (Version 1)
Quarter: 2016Q2

REPORT INFORMATION
  Report Type: Spontaneous
  Country: US (occurrence: US)
  Receive Date: 20160520
  Receipt Date: 20160520
  Transmission Date: 20160815
  Serious: Yes (Hospitalization, Other)
  Sender: FDA-Public Use
  Company Number: ADR-2015-01315

PATIENT
  Age: 17 Year
  Sex: Male

DRUGS (7)
  1. UNKNOWN [Suspect]
     Active Substance: UNSPECIFIED INGREDIENT
     Route: 048
  2. GABLOFEN [Suspect]
     Active Substance: BACLOFEN
     Route: 037
  3. COMPOUNDED BACLOFEN [Suspect]
     Active Substance: BACLOFEN
     Route: 037
  4. COMPOUNDED BACLOFEN [Suspect]
     Active Substance: BACLOFEN
     Route: 037
  5. COMPOUNDED BACLOFEN [Suspect]
     Active Substance: BACLOFEN
     Route: 037
  6. COMPOUNDED BACLOFEN [Suspect]
     Active Substance: BACLOFEN
     Route: 037
  7. COMPOUNDED BACLOFEN [Suspect]
     Active Substance: BACLOFEN
     Route: 037

REACTIONS (6)
  - Drug withdrawal syndrome [Unknown]
  - Pain [Unknown]
  - Overdose [Unknown]
  - Depressed level of consciousness [Unknown]
  - Drug administration error [Unknown]
  - Hypertonia [Unknown]

NARRATIVE: CASE EVENT DATE: 20150704
